FAERS Safety Report 20794325 (Version 2)
Quarter: 2022Q2

REPORT INFORMATION
  Report Type: Spontaneous
  Country: US (occurrence: US)
  Receive Date: 20220506
  Receipt Date: 20220602
  Transmission Date: 20220721
  Serious: Yes (Other)
  Sender: FDA-Public Use
  Company Number: US-BAYER-2022A063312

PATIENT
  Sex: Female

DRUGS (4)
  1. KERENDIA [Interacting]
     Active Substance: FINERENONE
     Dosage: 10 MG
     Dates: start: 20220411, end: 20220428
  2. SPIRONOLACTONE [Interacting]
     Active Substance: SPIRONOLACTONE
     Dosage: 25 MG, 1/2 TABLET DAILY
  3. CORIGIN [Concomitant]
     Dosage: 6.5 MG, BID
  4. LISINOPRIL [Concomitant]
     Active Substance: LISINOPRIL
     Dosage: 40 MG, QD

REACTIONS (5)
  - Hyperkalaemia [None]
  - Vomiting [None]
  - Balance disorder [None]
  - Hypotension [None]
  - Labelled drug-drug interaction issue [None]

NARRATIVE: CASE EVENT DATE: 20220411
